FAERS Safety Report 5164814-5 (Version None)
Quarter: 2006Q4

REPORT INFORMATION
  Report Type: 
  Country: None (occurrence: None)
  Receive Date: 20061205
  Receipt Date: 20061127
  Transmission Date: 20070319
  Serious: Yes (Other)
  Sender: FDA-Public Use
  Company Number: 2006UW26225

PATIENT
  Age: 70 Year
  Sex: Male

DRUGS (3)
  1. SEROQUEL [Suspect]
     Indication: ANXIETY
     Route: 048
  2. SEROQUEL [Suspect]
     Indication: BIPOLAR I DISORDER
     Route: 048
  3. LAMICTAL [Concomitant]

REACTIONS (4)
  - CHOLELITHIASIS [None]
  - CHOLELITHOTOMY [None]
  - HEPATIC ENZYME INCREASED [None]
  - NAUSEA [None]
